FAERS Safety Report 25151290 (Version 2)
Quarter: 2025Q2

REPORT INFORMATION
  Report Type: Spontaneous
  Country: US (occurrence: US)
  Receive Date: 20250402
  Receipt Date: 20250409
  Transmission Date: 20250716
  Serious: Yes (Hospitalization)
  Sender: BRISTOL MYERS SQUIBB
  Company Number: US-BRISTOL-MYERS SQUIBB COMPANY-2025-049074

PATIENT
  Age: 38 Year
  Sex: Female

DRUGS (6)
  1. AUGTYRO [Suspect]
     Active Substance: REPOTRECTINIB
     Indication: Product used for unknown indication
     Dosage: TAKE 1 CAPSULE BY MOUTH ONCE DAILY FOR 14 DAYS THEN TAKE 1 CAPSULE BY MOUTH TWICE DAILY THEREAFTER
     Route: 048
  2. AUGTYRO [Suspect]
     Active Substance: REPOTRECTINIB
     Dosage: TAKE 1 CAPSULE BY MOUTH ONCE DAILY FOR 14 DAYS THEN TAKE 1 CAPSULE BY MOUTH TWICE DAILY THEREAFTER
     Route: 048
  3. AUGTYRO [Suspect]
     Active Substance: REPOTRECTINIB
     Dosage: 1 CAPSULE PO QDAY X 7 DAYS,?THEN 1 CAPSULE PO BID X 7 DAYS,?THEN 3 CAPS PO Q DAY X 7 DAYS,?THEN 4 CA
     Route: 048
  4. AUGTYRO [Suspect]
     Active Substance: REPOTRECTINIB
     Dosage: 1 CAPSULE PO QDAY X 7 DAYS,?THEN 1 CAPSULE PO BID X 7 DAYS,?THEN 3 CAPS PO Q DAY X 7 DAYS,?THEN 4 CA
     Route: 048
  5. AUGTYRO [Suspect]
     Active Substance: REPOTRECTINIB
     Dosage: 1 CAPSULE PO QDAY X 7 DAYS,?THEN 1 CAPSULE PO BID X 7 DAYS,?THEN 3 CAPS PO Q DAY X 7 DAYS,?THEN 4 CA
     Route: 048
  6. AUGTYRO [Suspect]
     Active Substance: REPOTRECTINIB
     Dosage: 1 CAPSULE PO QDAY X 7 DAYS,?THEN 1 CAPSULE PO BID X 7 DAYS,?THEN 3 CAPS PO Q DAY X 7 DAYS,?THEN 4 CA
     Route: 048

REACTIONS (2)
  - Drug intolerance [Unknown]
  - Adverse drug reaction [Unknown]
